FAERS Safety Report 5711421-9 (Version None)
Quarter: 2008Q2

REPORT INFORMATION
  Report Type: 
  Country: None (occurrence: None)
  Receive Date: 20080421
  Receipt Date: 20080415
  Transmission Date: 20081010
  Serious: Yes (Death)
  Sender: FDA-Public Use
  Company Number: BE-JNJFOC-20070704297

PATIENT

DRUGS (2)
  1. SPORANOX [Suspect]
     Indication: DRUG EXPOSURE DURING PREGNANCY
  2. BIONATAL [Concomitant]
     Indication: DRUG EXPOSURE DURING PREGNANCY

REACTIONS (1)
  - DRUG EXPOSURE DURING PREGNANCY [None]
